FAERS Safety Report 6601329-9 (Version None)
Quarter: 2010Q1

REPORT INFORMATION
  Report Type: 
  Country: None (occurrence: None)
  Receive Date: 20100224
  Receipt Date: 20100224
  Transmission Date: 20100710
  Serious: No
  Sender: FDA-Public Use
  Company Number: None

PATIENT
  Sex: Male
  Weight: 86.8 kg

DRUGS (1)
  1. NASONEX [Suspect]
     Indication: SINUSITIS

REACTIONS (4)
  - DENTAL DISCOMFORT [None]
  - DISCOMFORT [None]
  - DYSGEUSIA [None]
  - SINUSITIS [None]
